FAERS Safety Report 12090236 (Version 3)
Quarter: 2016Q3

REPORT INFORMATION
  Report Type: Report from Study
  Country: JP (occurrence: JP)
  Receive Date: 20160218
  Receipt Date: 20160728
  Transmission Date: 20161109
  Serious: Yes (Death, Hospitalization, Other)
  Sender: FDA-Public Use
  Company Number: JP-INCYTE CORPORATION-2016IN000774

PATIENT
  Age: 80 Year
  Sex: Male
  Weight: 49 kg

DRUGS (7)
  1. JAKAFI [Suspect]
     Active Substance: RUXOLITINIB
     Indication: PRIMARY MYELOFIBROSIS
     Dosage: 5 MG, BID
     Route: 048
     Dates: start: 20150411, end: 20150813
  2. ITRIZOLE [Concomitant]
     Active Substance: ITRACONAZOLE
     Indication: OPPORTUNISTIC INFECTION PROPHYLAXIS
     Dosage: 200 MG, QD
     Route: 048
     Dates: start: 20150507, end: 20150805
  3. BAKTAR [Concomitant]
     Active Substance: SULFAMETHOXAZOLE\TRIMETHOPRIM
     Indication: OPPORTUNISTIC INFECTION PROPHYLAXIS
     Dosage: 1 DF, QD
     Route: 048
     Dates: start: 20150611, end: 20150812
  4. PRIMOBOLAN-DEPOT [Concomitant]
     Active Substance: METHENOLONE ENANTHATE
     Indication: PRIMARY MYELOFIBROSIS
     Dosage: 15 MG, QD
     Route: 048
     Dates: end: 20141216
  5. RED BLOOD CELLS [Concomitant]
     Active Substance: HUMAN RED BLOOD CELL
     Indication: PRIMARY MYELOFIBROSIS
     Dosage: 4 IU, QD
     Route: 065
     Dates: end: 20150814
  6. AUGMENTIN [Concomitant]
     Active Substance: AMOXICILLIN\CLAVULANATE POTASSIUM
     Indication: OPPORTUNISTIC INFECTION PROPHYLAXIS
     Dosage: 1 G, QD
     Route: 048
     Dates: start: 20150707, end: 20150723
  7. GENINAX [Concomitant]
     Active Substance: GARENOXACIN MESYLATE
     Indication: OPPORTUNISTIC INFECTION PROPHYLAXIS
     Dosage: 400 MG, QD
     Route: 048
     Dates: start: 20150411, end: 20150723

REACTIONS (8)
  - Neutrophil count decreased [Not Recovered/Not Resolved]
  - Pneumocystis jirovecii pneumonia [Recovering/Resolving]
  - Platelet count decreased [Unknown]
  - Blood alkaline phosphatase increased [Unknown]
  - Bacterial sepsis [Fatal]
  - Liver disorder [Recovering/Resolving]
  - Gingivitis [Unknown]
  - Haemoglobin decreased [Unknown]

NARRATIVE: CASE EVENT DATE: 20150413
